FAERS Safety Report 4913669-X (Version None)
Quarter: 2006Q1

REPORT INFORMATION
  Report Type: 
  Country: None (occurrence: None)
  Receive Date: 20060216
  Receipt Date: 20060207
  Transmission Date: 20060701
  Serious: Yes (Death)
  Sender: FDA-Public Use
  Company Number: JP-JNJFOC-20060202129

PATIENT
  Age: 6 Decade
  Sex: Male

DRUGS (3)
  1. RISPERDAL [Suspect]
     Indication: DRUG USE FOR UNKNOWN INDICATION
     Route: 048
  2. SULTOPRIDE HYDROCHLORIDE [Suspect]
     Route: 048
  3. SULTOPRIDE HYDROCHLORIDE [Suspect]
     Route: 048

REACTIONS (3)
  - AGGRESSION [None]
  - DEATH [None]
  - RESTLESSNESS [None]
